FAERS Safety Report 7686203-1 (Version None)
Quarter: 2011Q3

REPORT INFORMATION
  Report Type: 
  Country: None (occurrence: None)
  Receive Date: 20110816
  Receipt Date: 20110808
  Transmission Date: 20111222
  Serious: Yes (Other)
  Sender: FDA-Public Use
  Company Number: US-CEPHALON-US022096

PATIENT
  Sex: Female
  Weight: 53 kg

DRUGS (2)
  1. PROVIGIL [Suspect]
     Indication: FATIGUE
     Route: 048
     Dates: start: 20060901, end: 20070315
  2. MORPHINE SULFATE [Concomitant]
     Indication: PAIN
     Route: 065
     Dates: start: 20050101

REACTIONS (2)
  - PRE-ECLAMPSIA [None]
  - MATERNAL EXPOSURE DURING PREGNANCY [None]
